FAERS Safety Report 10013786 (Version 3)
Quarter: 2014Q3

REPORT INFORMATION
  Report Type: Spontaneous
  Country: US (occurrence: US)
  Receive Date: 20140316
  Receipt Date: 20140923
  Transmission Date: 20150326
  Serious: Yes (Hospitalization, Other)
  Sender: FDA-Public Use
  Company Number: US-BAYER-2014-039555

PATIENT
  Age: 23 Year
  Sex: Female
  Weight: 49.89 kg

DRUGS (1)
  1. MIRENA [Suspect]
     Active Substance: LEVONORGESTREL
     Indication: MENORRHAGIA
     Dosage: 20 MCG/24HR, CONT
     Route: 015
     Dates: start: 20100110, end: 20121221

REACTIONS (18)
  - Injury [None]
  - Uterine scar [None]
  - Anxiety [None]
  - Pain [None]
  - Dizziness [None]
  - Vision blurred [None]
  - Dysmenorrhoea [None]
  - Urinary tract infection [None]
  - Emotional distress [None]
  - Off label use [None]
  - Genital haemorrhage [None]
  - Device defective [None]
  - Menorrhagia [None]
  - Uterine perforation [None]
  - Migraine [None]
  - Fear [Not Recovered/Not Resolved]
  - Mental disorder [Not Recovered/Not Resolved]
  - Device issue [None]

NARRATIVE: CASE EVENT DATE: 2010
